FAERS Safety Report 5117614-6 (Version None)
Quarter: 2006Q3

REPORT INFORMATION
  Report Type: 
  Country: None (occurrence: None)
  Receive Date: 20060926
  Receipt Date: 20060905
  Transmission Date: 20061208
  Serious: Yes (Death, Other)
  Sender: FDA-Public Use
  Company Number: US200609001233

PATIENT
  Age: 73 Year
  Sex: Female

DRUGS (22)
  1. FORTEO [Suspect]
     Indication: OSTEOPOROSIS
     Dates: start: 20060101
  2. FORTEO PEN (FORETO PEN) PEN, DISPOSABLE [Concomitant]
  3. OMEPRAZOLE [Concomitant]
  4. SUCRALFATE (SUCRALFATE) TABLET [Concomitant]
  5. MARINOL (DRONABINOL) TABLET [Concomitant]
  6. HYDROCORTISONE [Concomitant]
  7. IMODIUM (LOPERAMIDE HYRDOCHLORIDE) [Concomitant]
  8. KLONOPIN [Concomitant]
  9. CALCIUM WITH VITAMIN D (CALCIUM PHOSPHATE, CALCIUM SODIUM LACTATE, ERG [Concomitant]
  10. PHYTONADIONE [Concomitant]
  11. POTASSIUM (POTASSIUM) [Concomitant]
  12. ENALAPRIL MALEATE [Concomitant]
  13. CENTRUM (MINERALS NOS, VITAMINS NOS) [Concomitant]
  14. NORTRIPTYLINE HCL [Concomitant]
  15. METHOTREXATE [Concomitant]
  16. PRAVACHOL [Concomitant]
  17. ARICEPT /JPN/ (DONEPEZIL HYDROCHLORIDE) [Concomitant]
  18. DIGOXIN (DIGOXIN) PILL (EXCEPT TABLETS) [Concomitant]
  19. COREG [Concomitant]
  20. FOLIC ACID (FOLIC ACID WITH VITAMINS-MINERALS) TABLET [Concomitant]
  21. COUMADIN [Concomitant]
  22. RISPERDAL  /SWE/ (RISPERIDONE) [Concomitant]

REACTIONS (10)
  - ASPIRATION [None]
  - CARDIAC FAILURE CONGESTIVE [None]
  - CARDIAC VALVE DISEASE [None]
  - DYSSTASIA [None]
  - GAIT DISTURBANCE [None]
  - HYPERTENSION [None]
  - IMPAIRED HEALING [None]
  - PHARMACEUTICAL PRODUCT COMPLAINT [None]
  - PNEUMONIA [None]
  - REFUSAL OF TREATMENT BY PATIENT [None]
